FAERS Safety Report 9797666 (Version 1)
Quarter: 2014Q1

REPORT INFORMATION
  Report Type: Spontaneous
  Country: US (occurrence: US)
  Receive Date: 20140106
  Receipt Date: 20140106
  Transmission Date: 20141002
  Serious: No
  Sender: FDA-Public Use
  Company Number: US-PFIZER INC-2014000676

PATIENT
  Sex: Female

DRUGS (2)
  1. ADVIL [Suspect]
     Dosage: 200 MG
     Dates: start: 20140101
  2. ASPIRIN [Suspect]
     Dosage: 650MG (TWO 325MG TABLETS)
     Route: 048
     Dates: start: 20140101

REACTIONS (2)
  - Vomiting [Not Recovered/Not Resolved]
  - Nervousness [Not Recovered/Not Resolved]
